FAERS Safety Report 7161491-9 (Version None)
Quarter: 2010Q4

REPORT INFORMATION
  Report Type: 
  Country: None (occurrence: None)
  Receive Date: 20101215
  Receipt Date: 20101207
  Transmission Date: 20110411
  Serious: Yes (Hospitalization)
  Sender: FDA-Public Use
  Company Number: US-PFIZER INC-2010132525

PATIENT
  Sex: Male
  Weight: 119 kg

DRUGS (15)
  1. ARGATROBAN [Suspect]
     Indication: HEPARIN-INDUCED THROMBOCYTOPENIA
     Dosage: 2 MCG/KG/MIN
     Route: 042
     Dates: start: 20101016, end: 20101017
  2. WARFARIN [Suspect]
     Dosage: 5 MG, UNK
     Dates: start: 20101015
  3. ACETYLSALICYLIC ACID [Concomitant]
     Dosage: 81 MG, 1X/DAY
  4. CARDIZEM [Concomitant]
  5. PROZAC [Concomitant]
     Dosage: 20 MG, 1X/DAY
  6. LASIX [Concomitant]
  7. TOPROL-XL [Concomitant]
     Dosage: 150 MG, 1X/DAY
  8. PRAVASTATIN [Concomitant]
  9. VICODIN [Concomitant]
  10. LANTUS [Concomitant]
  11. IMDUR [Concomitant]
     Dosage: 30 MG, 1X/DAY
  12. SYNTHROID [Concomitant]
     Dosage: 25 MCG, 1X/DAY
  13. PRILOSEC [Concomitant]
  14. OXACILLIN [Concomitant]
     Dosage: 2 G, 1X/DAY
     Route: 042
  15. ZANTAC [Concomitant]
     Dosage: 50 MG, 1X/DAY
     Route: 042

REACTIONS (2)
  - BLOOD BILIRUBIN INCREASED [None]
  - INTERNATIONAL NORMALISED RATIO INCREASED [None]
